FAERS Safety Report 16707678 (Version 1)
Quarter: 2019Q3

REPORT INFORMATION
  Report Type: Spontaneous
  Country: US (occurrence: US)
  Receive Date: 20190815
  Receipt Date: 20190815
  Transmission Date: 20191004
  Serious: Yes (Hospitalization, Other)
  Sender: FDA-Public Use
  Company Number: US-BIODELIVERY SCIENCES INTERNATIONAL-2018BDSI0191

PATIENT
  Sex: Female
  Weight: 66.28 kg

DRUGS (7)
  1. CANNABIS SATIVA [Concomitant]
     Active Substance: CANNABIS SATIVA SUBSP. SATIVA FLOWERING TOP
     Indication: FEELING OF RELAXATION
  2. BUPRENORPHINE. [Suspect]
     Active Substance: BUPRENORPHINE
     Indication: BACK PAIN
     Route: 002
  3. LEVOTHYROXINE SODIUM. [Concomitant]
     Active Substance: LEVOTHYROXINE SODIUM
     Indication: HYPOTHYROIDISM
     Route: 048
  4. CANNABIS SATIVA [Concomitant]
     Active Substance: CANNABIS SATIVA SUBSP. SATIVA FLOWERING TOP
     Indication: NAUSEA
     Dosage: ROUTE, STRENGTH, DOSE AND FREQUENCY UNKNOWN
  5. BUPRENORPHINE. [Suspect]
     Active Substance: BUPRENORPHINE
     Route: 002
     Dates: start: 2018
  6. BACLOFEN. [Concomitant]
     Active Substance: BACLOFEN
     Indication: HYPOTONIA
     Route: 048
  7. CANNABIS SATIVA [Concomitant]
     Active Substance: CANNABIS SATIVA SUBSP. SATIVA FLOWERING TOP
     Indication: PAIN
     Dosage: 3-4 PUFFS /3 TIMES A DAY
     Route: 055

REACTIONS (25)
  - Pain [Unknown]
  - Blood pressure increased [Unknown]
  - Nausea [Not Recovered/Not Resolved]
  - Hypoaesthesia [Unknown]
  - Potentiating drug interaction [Recovered/Resolved]
  - Hypoaesthesia [Unknown]
  - Burning sensation [Unknown]
  - Product prescribing error [Not Recovered/Not Resolved]
  - Product solubility abnormal [Unknown]
  - Oedema peripheral [Not Recovered/Not Resolved]
  - Blood thyroid stimulating hormone increased [Recovered/Resolved]
  - Abdominal discomfort [Unknown]
  - Blood potassium increased [Recovered/Resolved]
  - Dry mouth [Not Recovered/Not Resolved]
  - Paraesthesia [Unknown]
  - Gastric dilatation [Unknown]
  - Capillary fragility [Unknown]
  - Back pain [Unknown]
  - Decreased appetite [Not Recovered/Not Resolved]
  - Tremor [Unknown]
  - Loss of consciousness [Recovered/Resolved]
  - Wrong technique in product usage process [Unknown]
  - Oedema peripheral [Unknown]
  - Drug ineffective [Unknown]
  - Constipation [Unknown]

NARRATIVE: CASE EVENT DATE: 2017
